FAERS Safety Report 7820398-1 (Version None)
Quarter: 2011Q4

REPORT INFORMATION
  Report Type: 
  Country: None (occurrence: None)
  Receive Date: 20111018
  Receipt Date: 20111014
  Transmission Date: 20120403
  Serious: Yes (Other)
  Sender: FDA-Public Use
  Company Number: FR-TEVA-305388ISR

PATIENT
  Sex: Female

DRUGS (2)
  1. COPAXONE [Suspect]
     Dates: end: 20060101
  2. COPAXONE [Suspect]
     Dates: start: 20111013

REACTIONS (1)
  - AUTOIMMUNE HEPATITIS [None]
